FAERS Safety Report 5091202-2 (Version None)
Quarter: 2006Q3

REPORT INFORMATION
  Report Type: 
  Country: None (occurrence: None)
  Receive Date: 20060829
  Receipt Date: 20060302
  Transmission Date: 20061208
  Serious: Yes (Hospitalization, Other)
  Sender: FDA-Public Use
  Company Number: PHEH2006US02932

PATIENT
  Age: 57 Year
  Sex: Male
  Weight: 66.213 kg

DRUGS (6)
  1. LUPRON [Concomitant]
  2. CASODEX [Concomitant]
     Dosage: 50MG QD
  3. TAXOTERE [Concomitant]
     Dosage: 75MG/M2 QMO
     Dates: start: 20041201, end: 20050901
  4. TAXOTERE [Concomitant]
     Dosage: 75MG/M2 QMO
     Dates: start: 20060401
  5. ZOMETA [Suspect]
     Indication: METASTASES TO BONE
     Dosage: 4 MG, QMO
     Dates: start: 20041201, end: 20060101
  6. ZOLADEX [Concomitant]
     Dates: start: 20031101

REACTIONS (6)
  - DENTAL TREATMENT [None]
  - MANDIBULECTOMY [None]
  - OSTEONECROSIS [None]
  - PAIN IN JAW [None]
  - SWELLING [None]
  - TOOTH EXTRACTION [None]
